FAERS Safety Report 6508288-8 (Version None)
Quarter: 2009Q4

REPORT INFORMATION
  Report Type: 
  Country: None (occurrence: None)
  Receive Date: 20091221
  Receipt Date: 20081223
  Transmission Date: 20100525
  Serious: No
  Sender: FDA-Public Use
  Company Number: US-ASTRAZENECA-2008UW17139

PATIENT
  Age: 77 Year
  Sex: Female
  Weight: 56.7 kg

DRUGS (10)
  1. CRESTOR [Suspect]
     Indication: BLOOD CHOLESTEROL INCREASED
     Dosage: 10 MG
     Route: 048
     Dates: start: 20080808
  2. CRESTOR [Suspect]
     Route: 048
  3. ASPIRIN [Concomitant]
  4. VIT C [Concomitant]
  5. CALCIUM + VIT D [Concomitant]
  6. PLAVIX [Concomitant]
  7. BONIVA [Concomitant]
  8. LISINOPRIL [Concomitant]
  9. POTASSIUM [Concomitant]
  10. M.V.I. [Concomitant]

REACTIONS (4)
  - COUGH [None]
  - DIZZINESS [None]
  - MYALGIA [None]
  - OROPHARYNGEAL PAIN [None]
